FAERS Safety Report 25649900 (Version 1)
Quarter: 2025Q3

REPORT INFORMATION
  Report Type: Spontaneous
  Country: US (occurrence: None)
  Receive Date: 20250805
  Receipt Date: 20250805
  Transmission Date: 20251020
  Serious: Yes (unspecified)
  Sender: FDA-CTU
  Company Number: None

PATIENT
  Age: 55 Year
  Sex: Male
  Weight: 100 kg

DRUGS (5)
  1. CEFTRIAXONE [Suspect]
     Active Substance: CEFTRIAXONE
     Indication: Chronic obstructive pulmonary disease
     Route: 042
     Dates: start: 20250719, end: 20250719
  2. diphenhydramine IV [Concomitant]
     Dates: end: 20250721
  3. EPINEPHRINE [Concomitant]
     Active Substance: EPINEPHRINE
     Dates: start: 20250719, end: 20250720
  4. famotidine IV [Concomitant]
     Dates: start: 20250719, end: 20250721
  5. methylprednisolone taper [Concomitant]
     Dates: start: 20250719, end: 20250723

REACTIONS (2)
  - Anaphylactic reaction [None]
  - Respiratory failure [None]

NARRATIVE: CASE EVENT DATE: 20250719
